FAERS Safety Report 7762709-1 (Version None)
Quarter: 2011Q3

REPORT INFORMATION
  Report Type: 
  Country: None (occurrence: None)
  Receive Date: 20110920
  Receipt Date: 20110914
  Transmission Date: 20111222
  Serious: Yes (Other)
  Sender: FDA-Public Use
  Company Number: IE-PFIZER INC-2011217047

PATIENT
  Sex: Male

DRUGS (2)
  1. CASPOFUNGIN [Concomitant]
     Indication: PNEUMONIA
  2. ZYVOX [Suspect]
     Indication: PNEUMONIA

REACTIONS (2)
  - STAPHYLOCOCCAL INFECTION [None]
  - DRUG INEFFECTIVE [None]
